FAERS Safety Report 8851259 (Version 3)
Quarter: 2012Q4

REPORT INFORMATION
  Report Type: 
  Country: US (occurrence: US)
  Receive Date: 20121019
  Receipt Date: 20121218
  Transmission Date: 20130627
  Serious: Yes (Other)
  Sender: FDA-Public Use
  Company Number: US-PFIZER INC-2012259315

PATIENT
  Age: 78 Year
  Sex: Female
  Weight: 61.68 kg

DRUGS (8)
  1. LYRICA [Suspect]
     Indication: BACK PAIN
     Dosage: 50 mg, 1x/day
     Dates: start: 20120901, end: 20120901
  2. CHLORDIAZEPOXIDE HCL [Suspect]
     Dosage: UNK
  3. CHLORDIAZEPOXIDE HCL [Suspect]
     Dosage: 150 mg, UNK
  4. LOVASTATIN [Concomitant]
     Indication: BLOOD CHOLESTEROL ABNORMAL
     Dosage: UNK
  5. LEVOTHYROXINE [Concomitant]
     Indication: THYROID DISORDER
     Dosage: UNK
  6. WELLBUTRIN [Concomitant]
     Dosage: UNK
  7. TRAZODONE [Concomitant]
     Dosage: UNK
  8. ZOLPIDEM [Concomitant]
     Indication: SLEEP PROBLEM
     Dosage: UNK

REACTIONS (12)
  - Rib fracture [Unknown]
  - Mental impairment [Unknown]
  - Gait disturbance [Unknown]
  - Balance disorder [Unknown]
  - Fall [Unknown]
  - Movement disorder [Unknown]
  - Activities of daily living impaired [Unknown]
  - Tremor [Unknown]
  - Back pain [Unknown]
  - Pollakiuria [Unknown]
  - Abnormal behaviour [Unknown]
  - Joint injury [Unknown]
